FAERS Safety Report 16237177 (Version 2)
Quarter: 2019Q2

REPORT INFORMATION
  Report Type: Report from Study
  Country: None (occurrence: BR)
  Receive Date: 20190425
  Receipt Date: 20190524
  Transmission Date: 20190711
  Serious: Yes (Other)
  Sender: FDA-Public Use
  Company Number: BR-ABBVIE-18K-020-2514461-00

PATIENT
  Sex: Female

DRUGS (1)
  1. HUMIRA [Suspect]
     Active Substance: ADALIMUMAB
     Indication: RHEUMATOID ARTHRITIS
     Route: 058
     Dates: start: 20180921, end: 20190210

REACTIONS (4)
  - Musculoskeletal disorder [Unknown]
  - Peripheral swelling [Recovered/Resolved]
  - Spinal stenosis [Unknown]
  - Fall [Unknown]

NARRATIVE: CASE EVENT DATE: 2018
